FAERS Safety Report 7313003-4 (Version None)
Quarter: 2011Q1

REPORT INFORMATION
  Report Type: 
  Country: None (occurrence: None)
  Receive Date: 20110225
  Receipt Date: 20110217
  Transmission Date: 20110831
  Serious: Yes (Other)
  Sender: FDA-Public Use
  Company Number: BE-AMGEN-BELSP2011005676

PATIENT
  Age: 73 Year
  Sex: Male

DRUGS (10)
  1. ALLOPURINOL [Concomitant]
     Dosage: 300 MG, 1X/DAY
     Route: 048
  2. HYGROTON [Concomitant]
     Dosage: 50 MG, 1X/DAY
     Route: 048
  3. SECTRAL [Concomitant]
     Dosage: 400 MG, 1X/DAY
     Route: 048
  4. ENBREL [Suspect]
     Indication: PSORIASIS
     Dosage: 50 MG, WEEKLY
     Route: 058
     Dates: start: 20101129, end: 20110110
  5. TORSEMIDE [Concomitant]
     Dosage: 10 MG, 1X/DAY
     Route: 048
  6. PANTOPRAZOLE [Concomitant]
     Dosage: 20 MG, 1X/DAY
     Route: 048
  7. AMLODIPINE [Concomitant]
     Dosage: UNK
     Route: 048
  8. ASAFLOW [Concomitant]
     Dosage: 80 MG, 1X/DAY
     Route: 048
  9. SIMVASTATIN [Concomitant]
     Dosage: 20 MG, 1X/DAY
     Route: 048
  10. ALISKIREN [Concomitant]
     Dosage: UNK
     Route: 048

REACTIONS (5)
  - INFLUENZA LIKE ILLNESS [None]
  - OEDEMA PERIPHERAL [None]
  - DIARRHOEA [None]
  - ARRHYTHMIA [None]
  - PYREXIA [None]
